FAERS Safety Report 24695897 (Version 1)
Quarter: 2024Q4

REPORT INFORMATION
  Report Type: Spontaneous
  Country: GB (occurrence: GB)
  Receive Date: 20241204
  Receipt Date: 20241204
  Transmission Date: 20250114
  Serious: Yes (Other)
  Sender: RANBAXY
  Company Number: GB-SUN PHARMACEUTICAL INDUSTRIES LTD-2024RR-482257

PATIENT
  Age: 66 Year
  Sex: Female
  Weight: 58 kg

DRUGS (8)
  1. LEVETIRACETAM [Suspect]
     Active Substance: LEVETIRACETAM
     Indication: Ill-defined disorder
     Dosage: TAKE 5ML (500MG) TWICE A DAY WHILST LEVETIRACET...
     Route: 065
     Dates: start: 20240715
  2. FORTISIP BOTTLE [Concomitant]
     Indication: Ill-defined disorder
     Dosage: USE AS DIRECTED
     Route: 065
     Dates: start: 20241002, end: 20241030
  3. CODEINE PHOSPHATE [Concomitant]
     Active Substance: CODEINE PHOSPHATE
     Indication: Ill-defined disorder
     Dosage: TAKE ONE OR TWO  4 TIMES A DAY WHEN REQUIRED
     Route: 065
     Dates: start: 20240912, end: 20240928
  4. POLYETHYLENE GLYCOL 3350\POTASSIUM CHLORIDE\SODIUM BICARBONATE\SODIUM [Concomitant]
     Active Substance: POLYETHYLENE GLYCOL 3350\POTASSIUM CHLORIDE\SODIUM BICARBONATE\SODIUM CHLORIDE
     Indication: Ill-defined disorder
     Dosage: 1 SACHET ONCE OR TWICE DAILY IF REQUIRED FOR CO...
     Route: 065
     Dates: start: 20240913, end: 20241013
  5. EVACAL [Concomitant]
     Indication: Ill-defined disorder
     Dosage: TAKE ONE WITH FOOD TWICE DAILY
     Route: 065
     Dates: start: 20220816
  6. OMEPRAZOLE [Concomitant]
     Active Substance: OMEPRAZOLE
     Indication: Ill-defined disorder
     Dosage: TAKE TWO DAILY IN EMPTY STOMACH TO PROTECT YOUR...
     Route: 065
     Dates: start: 20220816
  7. ANASTROZOLE [Concomitant]
     Active Substance: ANASTROZOLE
     Indication: Ill-defined disorder
     Dosage: TAKE ONE DAILY
     Route: 065
     Dates: start: 20230802
  8. DEXAMETHASONE [Concomitant]
     Active Substance: DEXAMETHASONE
     Indication: Ill-defined disorder
     Dosage: TWO DAILY
     Route: 065
     Dates: start: 20240813

REACTIONS (1)
  - Injection site reaction [Recovered/Resolved]
